FAERS Safety Report 18630436 (Version 1)
Quarter: 2020Q4

REPORT INFORMATION
  Report Type: Report from Study
  Country: US (occurrence: US)
  Receive Date: 20201218
  Receipt Date: 20201218
  Transmission Date: 20210114
  Serious: No
  Sender: FDA-Public Use
  Company Number: US-IPSEN BIOPHARMACEUTICALS, INC.-2020-24151

PATIENT
  Age: 45 Year
  Sex: Female

DRUGS (1)
  1. SOMATULINE DEPOT [Suspect]
     Active Substance: LANREOTIDE ACETATE
     Indication: CARCINOID TUMOUR OF THE APPENDIX
     Dosage: UPPER OUTER BUTTOCKS (ROTATE)
     Route: 058
     Dates: start: 202007, end: 20201130

REACTIONS (5)
  - Hair growth abnormal [Unknown]
  - Mood swings [Unknown]
  - Insulin-like growth factor increased [Unknown]
  - Increased appetite [Unknown]
  - Alopecia [Unknown]

NARRATIVE: CASE EVENT DATE: 2020
